FAERS Safety Report 4611192-3 (Version None)
Quarter: 2005Q1

REPORT INFORMATION
  Report Type: 
  Country: None (occurrence: None)
  Receive Date: 20050317
  Receipt Date: 20050307
  Transmission Date: 20050727
  Serious: Yes (Death, Other)
  Sender: FDA-Public Use
  Company Number: JP-MERCK-0503USA01606

PATIENT
  Age: 74 Year
  Sex: Male
  Weight: 57 kg

DRUGS (7)
  1. PEPCID [Suspect]
     Indication: PREMEDICATION
     Route: 042
  2. DIAZEPAM [Concomitant]
     Route: 065
  3. FENTANYL [Concomitant]
     Route: 065
  4. THIOPENTAL SODIUM [Concomitant]
     Route: 065
  5. NITROUS OXIDE [Concomitant]
     Indication: INDUCTION OF ANAESTHESIA
     Route: 065
  6. ISOFLURANE [Concomitant]
     Indication: INDUCTION OF ANAESTHESIA
     Route: 065
  7. [THERAPY UNSPECIFIED] [Concomitant]
     Indication: EPIDURAL ANAESTHESIA
     Route: 065

REACTIONS (6)
  - HYPOTENSION [None]
  - LEUKOPENIA [None]
  - LUNG ABSCESS [None]
  - PNEUMONIA [None]
  - RESPIRATORY FAILURE [None]
  - VASCULAR RESISTANCE SYSTEMIC INCREASED [None]
